FAERS Safety Report 5799223-9 (Version None)
Quarter: 2008Q3

REPORT INFORMATION
  Report Type: 
  Country: None (occurrence: None)
  Receive Date: 20080702
  Receipt Date: 20080624
  Transmission Date: 20090109
  Serious: Yes (Life-Threatening, Hospitalization, Other)
  Sender: FDA-Public Use
  Company Number: US-PFIZER INC-2008047325

PATIENT
  Age: 44 Year
  Sex: Male
  Weight: 84.8 kg

DRUGS (2)
  1. CHANTIX [Suspect]
     Dosage: TEXT:DAILY
     Dates: start: 20080527, end: 20080601
  2. ATIVAN [Suspect]
     Dosage: TEXT:0.5

REACTIONS (1)
  - HAEMOLYTIC ANAEMIA [None]
